FAERS Safety Report 17669432 (Version 3)
Quarter: 2020Q2

REPORT INFORMATION
  Report Type: Report from Study
  Country: GB (occurrence: GB)
  Receive Date: 20200415
  Receipt Date: 20200625
  Transmission Date: 20200713
  Serious: Yes (Hospitalization)
  Sender: FDA-Public Use
  Company Number: GB-BRISTOL-MYERS SQUIBB COMPANY-BMS-2020-029628

PATIENT
  Age: 48 Year
  Sex: Female
  Weight: 96.5 kg

DRUGS (2)
  1. IPILIMUMAB [Suspect]
     Active Substance: IPILIMUMAB
     Indication: GLIOBLASTOMA
     Dosage: 292.2 MILLIGRAM, EVERY 3 WEEKS FOR 4 DOSES
     Route: 042
     Dates: start: 20200224
  2. TEMOZOLOMIDE. [Suspect]
     Active Substance: TEMOZOLOMIDE
     Indication: GLIOBLASTOMA
     Dosage: 300 MILLIGRAM, DAILY FOR 5 DAYS IN 6 X 28 DAYS CYCLES
     Route: 048
     Dates: start: 20200316

REACTIONS (1)
  - Muscular weakness [Recovered/Resolved]

NARRATIVE: CASE EVENT DATE: 20200407
